FAERS Safety Report 8179057-0 (Version None)
Quarter: 2012Q1

REPORT INFORMATION
  Report Type: 
  Country: None (occurrence: None)
  Receive Date: 20120302
  Receipt Date: 20120221
  Transmission Date: 20120608
  Serious: Yes (Hospitalization, Other)
  Sender: FDA-Public Use
  Company Number: US-ROCHE-353435

PATIENT
  Sex: Male
  Weight: 98.9 kg

DRUGS (16)
  1. LIPITOR [Suspect]
  2. PRILOSEC [Concomitant]
  3. PREVACID [Concomitant]
     Indication: IRRITABLE BOWEL SYNDROME
     Route: 048
  4. ACCUTANE [Suspect]
     Indication: ACNE
     Route: 048
  5. ACCUTANE [Suspect]
     Route: 048
  6. ACCUTANE [Suspect]
     Route: 048
  7. ACCUTANE [Suspect]
     Route: 048
  8. PAMINE [Concomitant]
     Indication: IRRITABLE BOWEL SYNDROME
     Route: 048
  9. XANAX [Concomitant]
  10. TYLENOL PM [Suspect]
     Indication: INSOMNIA
     Route: 048
  11. PREDNISONE TAB [Concomitant]
  12. BUSPAR [Concomitant]
     Indication: ANXIETY
     Dosage: DOSAGE EGIMEN REPORTED AS: VARIES.
     Route: 048
  13. RITALIN [Suspect]
     Indication: ATTENTION DEFICIT/HYPERACTIVITY DISORDER
     Route: 048
  14. ACCUTANE [Suspect]
     Route: 048
  15. RELAFEN [Concomitant]
  16. IMITREX [Suspect]
     Indication: MIGRAINE

REACTIONS (46)
  - CORONARY ARTERY DISEASE [None]
  - ARTHRITIS [None]
  - ARTHRALGIA [None]
  - ELECTROCARDIOGRAM ST-T SEGMENT ABNORMAL [None]
  - SLEEP APNOEA SYNDROME [None]
  - ENCHONDROMA [None]
  - MITRAL VALVE INCOMPETENCE [None]
  - MYOCARDIAL ISCHAEMIA [None]
  - GASTRIC DISORDER [None]
  - BLOOD CHOLESTEROL INCREASED [None]
  - DEPRESSION [None]
  - PANIC ATTACK [None]
  - FATIGUE [None]
  - HYPOAESTHESIA [None]
  - LEFT VENTRICULAR HYPERTROPHY [None]
  - ANXIETY [None]
  - TACHYCARDIA [None]
  - HAEMOGLOBIN DECREASED [None]
  - COLONIC POLYP [None]
  - ARTERIOSCLEROSIS [None]
  - HEART INJURY [None]
  - BLOOD TRIGLYCERIDES INCREASED [None]
  - MYALGIA [None]
  - HYPERHIDROSIS [None]
  - LOSS OF CONSCIOUSNESS [None]
  - HIDRADENITIS [None]
  - HYPOTENSION [None]
  - CHOLELITHIASIS [None]
  - DYSPNOEA [None]
  - HYPOKINESIA [None]
  - ASTHMA [None]
  - VISUAL IMPAIRMENT [None]
  - MYOCARDIAL INFARCTION [None]
  - ANGINA UNSTABLE [None]
  - CARDIOMYOPATHY [None]
  - HEADACHE [None]
  - DIARRHOEA [None]
  - LEFT ATRIAL DILATATION [None]
  - CHEST PAIN [None]
  - CARDIOMEGALY [None]
  - CARDIAC DISORDER [None]
  - SYNCOPE [None]
  - HYPERTENSION [None]
  - VOMITING [None]
  - DRY SKIN [None]
  - DIZZINESS [None]
